FAERS Safety Report 7747635-6 (Version None)
Quarter: 2011Q3

REPORT INFORMATION
  Report Type: 
  Country: None (occurrence: None)
  Receive Date: 20110913
  Receipt Date: 20110912
  Transmission Date: 20111222
  Serious: Yes (Death, Other)
  Sender: FDA-Public Use
  Company Number: VE-PFIZER INC-2011208022

PATIENT
  Age: 56 Year
  Sex: Female

DRUGS (1)
  1. LIPITOR [Suspect]
     Dosage: UNK

REACTIONS (3)
  - BRONCHOPULMONARY ASPERGILLOSIS [None]
  - DENGUE FEVER [None]
  - BRONCHOPNEUMONIA [None]
